FAERS Safety Report 11238810 (Version 1)
Quarter: 2015Q3

REPORT INFORMATION
  Report Type: Spontaneous
  Country: US (occurrence: US)
  Receive Date: 20150706
  Receipt Date: 20150706
  Transmission Date: 20151125
  Serious: No
  Sender: FDA-Public Use
  Company Number: US-009507513-1507USA000661

PATIENT
  Age: 42 Year
  Sex: Female

DRUGS (1)
  1. TEMODAR [Suspect]
     Active Substance: TEMOZOLOMIDE
     Indication: NEOPLASM MALIGNANT
     Dosage: UNK, QD, STRENGTH REPORTED AS ^140/5^
     Route: 048
     Dates: start: 20150608

REACTIONS (2)
  - Fall [Unknown]
  - Bone pain [Unknown]

NARRATIVE: CASE EVENT DATE: 20150629
